FAERS Safety Report 6571546-5 (Version None)
Quarter: 2010Q1

REPORT INFORMATION
  Report Type: 
  Country: None (occurrence: None)
  Receive Date: 20100205
  Receipt Date: 20100126
  Transmission Date: 20100710
  Serious: Yes (Other)
  Sender: FDA-Public Use
  Company Number: US-JNJFOC-20100101947

PATIENT
  Sex: Male

DRUGS (4)
  1. PREZISTA [Suspect]
     Indication: HIV INFECTION
     Route: 048
  2. RITONAVIR [Suspect]
     Indication: HIV INFECTION
  3. EMTRIVA [Concomitant]
     Indication: HIV INFECTION
  4. ISENTRESS [Concomitant]
     Indication: HIV INFECTION

REACTIONS (2)
  - CONTUSION [None]
  - HAEMATOMA [None]
